FAERS Safety Report 11710429 (Version 1)
Quarter: 2015Q4

REPORT INFORMATION
  Report Type: Spontaneous
  Country: US (occurrence: US)
  Receive Date: 20151104
  Receipt Date: 20151104
  Transmission Date: 20160304
  Serious: No
  Sender: FDA-Public Use
  Company Number: US-ELI_LILLY_AND_COMPANY-US201101007145

PATIENT
  Sex: Female

DRUGS (2)
  1. FORTEO [Suspect]
     Active Substance: TERIPARATIDE
     Indication: OSTEOPOROSIS
     Dosage: 20 UG, QD
     Route: 065
     Dates: start: 201010
  2. FORTEO [Suspect]
     Active Substance: TERIPARATIDE
     Dosage: 20 UG, QD

REACTIONS (9)
  - Dehydration [Unknown]
  - Ill-defined disorder [Unknown]
  - Asthenia [Unknown]
  - Abscess [Unknown]
  - Feeling cold [Unknown]
  - Malaise [Recovering/Resolving]
  - Mobility decreased [Unknown]
  - Cough [Unknown]
  - Hyperhidrosis [Unknown]
